FAERS Safety Report 13184475 (Version 1)
Quarter: 2017Q1

REPORT INFORMATION
  Report Type: Spontaneous
  Country: US (occurrence: US)
  Receive Date: 20170203
  Receipt Date: 20170203
  Transmission Date: 20170428
  Serious: Yes (Hospitalization, Other)
  Sender: FDA-Public Use
  Company Number: None

PATIENT
  Age: 70 Year
  Sex: Male
  Weight: 107 kg

DRUGS (1)
  1. ZOLEDRONIC [Suspect]
     Active Substance: ZOLEDRONIC ACID
     Indication: OSTEOPOROSIS
     Route: 042
     Dates: start: 20160127, end: 20160127

REACTIONS (2)
  - Uveitis [None]
  - Iridocyclitis [None]

NARRATIVE: CASE EVENT DATE: 20160127
